FAERS Safety Report 7789507-7 (Version None)
Quarter: 2011Q3

REPORT INFORMATION
  Report Type: 
  Country: None (occurrence: None)
  Receive Date: 20110930
  Receipt Date: 20110916
  Transmission Date: 20111222
  Serious: Yes (Hospitalization, Other)
  Sender: FDA-Public Use
  Company Number: DE-ELI_LILLY_AND_COMPANY-DE201109004328

PATIENT
  Age: 79 Year
  Sex: Female

DRUGS (11)
  1. LYRICA [Concomitant]
     Dosage: 75 MG, QD
     Route: 048
     Dates: start: 20100512, end: 20100515
  2. LORAZEPAM [Concomitant]
     Dosage: 0.5 MG, UNK
     Route: 048
     Dates: start: 20100512, end: 20100512
  3. ZYPREXA [Suspect]
     Indication: DEPRESSION
     Dosage: 2.5 MG, UNKNOWN
     Route: 048
     Dates: start: 20100512, end: 20100618
  4. LYRICA [Concomitant]
     Dosage: 300 MG, QD
     Route: 048
     Dates: start: 20100604
  5. NOVALGIN [Concomitant]
     Indication: ANALGESIC THERAPY
     Dosage: 250 MG, UNK
     Route: 048
     Dates: start: 20100514, end: 20100518
  6. LYRICA [Concomitant]
     Dosage: 150 MG, QD
     Route: 048
     Dates: start: 20100416, end: 20100530
  7. LYRICA [Concomitant]
     Dosage: 225 MG, QD
     Route: 048
     Dates: start: 20100531, end: 20100603
  8. LORAZEPAM [Concomitant]
     Dosage: 0.5 MG, UNK
     Route: 048
     Dates: start: 20100521
  9. SERTRALINE HYDROCHLORIDE [Concomitant]
     Dosage: 25 MG, UNKNOWN
     Route: 048
     Dates: start: 20100513, end: 20100520
  10. LORAZEPAM [Concomitant]
     Dosage: UNK MG, UNK
     Route: 048
  11. SERTRALINE HYDROCHLORIDE [Concomitant]
     Dosage: 50 MG, QD
     Route: 048
     Dates: start: 20100521

REACTIONS (2)
  - HOSPITALISATION [None]
  - HYPONATRAEMIA [None]
